FAERS Safety Report 17938489 (Version 1)
Quarter: 2020Q2

REPORT INFORMATION
  Report Type: Spontaneous
  Country: US (occurrence: US)
  Receive Date: 20200624
  Receipt Date: 20200624
  Transmission Date: 20200714
  Serious: No
  Sender: FDA-Public Use
  Company Number: US-JACOBUS PHARMACEUTICAL COMPANY, INC.-2086620

PATIENT
  Age: 68 Year
  Sex: Female

DRUGS (17)
  1. PREDNISONE. [Concomitant]
     Active Substance: PREDNISONE
  2. JARDIANCE [Concomitant]
     Active Substance: EMPAGLIFLOZIN
  3. TYLENOL [Concomitant]
     Active Substance: ACETAMINOPHEN
  4. PANTRAPOZOLE [Concomitant]
  5. SUPER VITAMIN C [Concomitant]
  6. IVIG [Concomitant]
     Active Substance: HUMAN IMMUNOGLOBULIN G
  7. N-PLATE INJECTION [Concomitant]
  8. B12 INJECT KIT [Concomitant]
     Active Substance: CYANOCOBALAMIN
  9. MESTINON [Concomitant]
     Active Substance: PYRIDOSTIGMINE BROMIDE
  10. MECLIZINE [Concomitant]
     Active Substance: MECLIZINE HYDROCHLORIDE
  11. VENLAFAXINE [Concomitant]
     Active Substance: VENLAFAXINE HYDROCHLORIDE
  12. TRAMADOL. [Concomitant]
     Active Substance: TRAMADOL
  13. IRON [Concomitant]
     Active Substance: IRON
  14. POTASSIUM CHLORIDE. [Concomitant]
     Active Substance: POTASSIUM CHLORIDE
  15. MAGNESIUM CHLORIDE. [Concomitant]
     Active Substance: MAGNESIUM CHLORIDE
  16. RUZURGI [Suspect]
     Active Substance: AMIFAMPRIDINE
     Indication: MYASTHENIC SYNDROME
     Route: 048
     Dates: start: 20200610
  17. MIDODRINE HYDROCHLORIDE. [Concomitant]
     Active Substance: MIDODRINE HYDROCHLORIDE

REACTIONS (2)
  - Abdominal pain [None]
  - Paraesthesia [None]

NARRATIVE: CASE EVENT DATE: 20200610
